FAERS Safety Report 8885600 (Version 2)
Quarter: 2012Q4

REPORT INFORMATION
  Report Type: 
  Country: US (occurrence: US)
  Receive Date: 20121102
  Receipt Date: 20121211
  Transmission Date: 20130627
  Serious: No
  Sender: FDA-Public Use
  Company Number: US-009507513-1210USA011554

PATIENT
  Sex: Female

DRUGS (3)
  1. PEG-INTRON [Suspect]
     Indication: HEPATITIS C
     Dosage: UNK
     Route: 058
     Dates: start: 20121013
  2. REBETOL [Suspect]
     Indication: HEPATITIS C
     Dosage: UNK
     Route: 048
     Dates: start: 20121013
  3. VICTRELIS [Suspect]
     Dosage: UNK
     Dates: start: 20121117

REACTIONS (4)
  - Dysgeusia [Unknown]
  - Urticaria [Unknown]
  - Asthenia [Unknown]
  - Pain [Unknown]
